FAERS Safety Report 5605932-4 (Version None)
Quarter: 2008Q1

REPORT INFORMATION
  Report Type: 
  Country: None (occurrence: None)
  Receive Date: 20080123
  Receipt Date: 20080123
  Transmission Date: 20080703
  Serious: No
  Sender: FDA-Public Use
  Company Number: None

PATIENT
  Sex: Female
  Weight: 23 kg

DRUGS (1)
  1. ONDANSETRON [Suspect]
     Indication: NAUSEA
     Dosage: 4 MG X1 IV BOLUS
     Route: 040
     Dates: start: 20071015, end: 20071015

REACTIONS (2)
  - INFUSION SITE ERYTHEMA [None]
  - URTICARIA [None]
